FAERS Safety Report 6167067-4 (Version None)
Quarter: 2009Q2

REPORT INFORMATION
  Report Type: 
  Country: None (occurrence: None)
  Receive Date: 20090423
  Receipt Date: 20090423
  Transmission Date: 20091009
  Serious: Yes (Hospitalization)
  Sender: FDA-Public Use
  Company Number: None

PATIENT
  Sex: Male
  Weight: 63.9 kg

DRUGS (9)
  1. VELCADE [Suspect]
     Indication: MULTIPLE MYELOMA
     Dosage: 1.0 MG/M2 D1,4,8,11 IV
     Route: 042
     Dates: start: 20090317
  2. VELCADE [Suspect]
     Indication: MULTIPLE MYELOMA
     Dosage: 1.0 MG/M2 D1,4,8,11 IV
     Route: 042
     Dates: start: 20090320
  3. VELCADE [Suspect]
     Indication: MULTIPLE MYELOMA
     Dosage: 1.0 MG/M2 D1,4,8,11 IV
     Route: 042
     Dates: start: 20090324
  4. VELCADE [Suspect]
     Indication: MULTIPLE MYELOMA
     Dosage: 1.0 MG/M2 D1,4,8,11 IV
     Route: 042
     Dates: start: 20090327
  5. DEXAMETHASONE 4MG TAB [Concomitant]
  6. DOXIRUBICIN [Concomitant]
  7. ALCAR [Concomitant]
  8. VANCOMYCIN HCL [Concomitant]
  9. CEPHTRIAXONE [Concomitant]

REACTIONS (5)
  - BACTERIAL INFECTION [None]
  - COUGH [None]
  - FATIGUE [None]
  - HYPOTENSION [None]
  - PNEUMOCOCCAL INFECTION [None]
